FAERS Safety Report 20795868 (Version 1)
Quarter: 2022Q2

REPORT INFORMATION
  Report Type: Spontaneous
  Country: US (occurrence: US)
  Receive Date: 20220506
  Receipt Date: 20220506
  Transmission Date: 20220721
  Serious: No
  Sender: FDA-Public Use
  Company Number: US-PFIZER INC-2021245134

PATIENT
  Age: 72 Year
  Sex: Female

DRUGS (1)
  1. LYRICA [Suspect]
     Active Substance: PREGABALIN
     Indication: Lumbosacral radiculopathy
     Dosage: 200 MG 2X/DAY (1 CAPSULE BY MOUTH 2 (TWO) TIMES DAILY FOR 90 DAYS)
     Route: 048

REACTIONS (1)
  - Feeling abnormal [Unknown]
